FAERS Safety Report 24659530 (Version 2)
Quarter: 2025Q3

REPORT INFORMATION
  Report Type: Spontaneous
  Country: EU (occurrence: EU)
  Receive Date: 20241125
  Receipt Date: 20250707
  Transmission Date: 20251020
  Serious: Yes (Life-Threatening, Hospitalization)
  Sender: JOHNSON AND JOHNSON
  Company Number: None

PATIENT
  Age: 36 Year
  Sex: Male
  Weight: 130 kg

DRUGS (4)
  1. PALIPERIDONE PALMITATE [Suspect]
     Active Substance: PALIPERIDONE PALMITATE
     Indication: Product used for unknown indication
     Dosage: 1 TIME A MONTH
     Route: 030
     Dates: start: 20240912
  2. PALIPERIDONE PALMITATE [Suspect]
     Active Substance: PALIPERIDONE PALMITATE
  3. PALIPERIDONE PALMITATE [Suspect]
     Active Substance: PALIPERIDONE PALMITATE
  4. ZUCLOPENTHIXOL [Suspect]
     Active Substance: ZUCLOPENTHIXOL
     Indication: Product used for unknown indication
     Route: 030
     Dates: start: 20241009, end: 20241016

REACTIONS (2)
  - Blood testosterone decreased [Not Recovered/Not Resolved]
  - Diabetes mellitus [Not Recovered/Not Resolved]

NARRATIVE: CASE EVENT DATE: 20241031
